FAERS Safety Report 19888511 (Version 1)
Quarter: 2021Q3

REPORT INFORMATION
  Report Type: Spontaneous
  Country: US (occurrence: US)
  Receive Date: 20210927
  Receipt Date: 20210927
  Transmission Date: 20211014
  Serious: No
  Sender: FDA-Public Use
  Company Number: None

PATIENT
  Sex: Female

DRUGS (1)
  1. HUMIRA [Suspect]
     Active Substance: ADALIMUMAB
     Indication: CROHN^S DISEASE
     Dosage: ?          OTHER ROUTE:UNDER THE SKIN?
     Dates: start: 20210920

REACTIONS (9)
  - Abdominal pain [None]
  - Skin irritation [None]
  - Rash [None]
  - Ingrowing nail [None]
  - Arthralgia [None]
  - Flatulence [None]
  - Fatigue [None]
  - Asthenia [None]
  - Abdominal distension [None]
